FAERS Safety Report 4724916-1 (Version None)
Quarter: 2005Q3

REPORT INFORMATION
  Report Type: 
  Country: None (occurrence: None)
  Receive Date: 20050726
  Receipt Date: 20050627
  Transmission Date: 20060218
  Serious: Yes (Death, Life-Threatening, Other)
  Sender: FDA-Public Use
  Company Number: JP-SANOFI-SYNTHELABO-F01200501122

PATIENT
  Sex: Male

DRUGS (3)
  1. OXALIPLATIN [Suspect]
     Indication: COLON CANCER
     Dosage: 100MG/BODY, DR
     Route: 042
     Dates: start: 20050530, end: 20050530
  2. FLUOROURACIL [Suspect]
     Indication: COLON CANCER
     Dosage: 500 MG BOLUS THEN 750 MG CONTINOUS INFUSION
     Route: 042
     Dates: start: 20050530, end: 20050531
  3. CALCIUM LEVOFOLINATE [Suspect]
     Indication: COLON CANCER
     Dosage: 150MG/BODY, DR
     Route: 042
     Dates: start: 20050530, end: 20050531

REACTIONS (12)
  - ALANINE AMINOTRANSFERASE INCREASED [None]
  - ASPARTATE AMINOTRANSFERASE INCREASED [None]
  - CARDIAC ARREST [None]
  - COLON CANCER [None]
  - DISSEMINATED INTRAVASCULAR COAGULATION [None]
  - HAEMOGLOBIN DECREASED [None]
  - LEUKOPENIA [None]
  - MALIGNANT NEOPLASM PROGRESSION [None]
  - NAUSEA [None]
  - PYREXIA [None]
  - THROMBOCYTOPENIA [None]
  - VOMITING [None]
